FAERS Safety Report 24018734 (Version 2)
Quarter: 2024Q3

REPORT INFORMATION
  Report Type: Spontaneous
  Country: US (occurrence: US)
  Receive Date: 20240627
  Receipt Date: 20240728
  Transmission Date: 20241017
  Serious: No
  Sender: GLAXOSMITHKLINE
  Company Number: US-GSKCCFUS-Case-02039522_AE-113078

PATIENT
  Age: 63 Year
  Sex: Male
  Weight: 144 kg

DRUGS (1)
  1. NUCALA [Suspect]
     Active Substance: MEPOLIZUMAB
     Indication: Asthma
     Dosage: 100 MG
     Route: 058
     Dates: start: 20240620

REACTIONS (4)
  - Wrong technique in device usage process [Recovered/Resolved]
  - Incorrect dose administered [Unknown]
  - Accidental exposure to product [Recovered/Resolved]
  - Product storage error [Unknown]

NARRATIVE: CASE EVENT DATE: 20240620
